FAERS Safety Report 12599407 (Version 1)
Quarter: 2016Q3

REPORT INFORMATION
  Report Type: Spontaneous
  Country: CA (occurrence: CA)
  Receive Date: 20160727
  Receipt Date: 20160727
  Transmission Date: 20161109
  Serious: Yes (Hospitalization)
  Sender: FDA-Public Use
  Company Number: CA-BAYER-2016-143632

PATIENT
  Age: 79 Year
  Sex: Female

DRUGS (2)
  1. ALEVE [Suspect]
     Active Substance: NAPROXEN SODIUM
     Dosage: UNK
  2. WARFARIN [Interacting]
     Active Substance: WARFARIN
     Dosage: UNK

REACTIONS (6)
  - Drug administration error [None]
  - Nausea [Not Recovered/Not Resolved]
  - Labelled drug-drug interaction medication error [None]
  - Physical product label issue [None]
  - Lethargy [Not Recovered/Not Resolved]
  - Syncope [Not Recovered/Not Resolved]
